FAERS Safety Report 4677244-7 (Version None)
Quarter: 2005Q2

REPORT INFORMATION
  Report Type: 
  Country: None (occurrence: None)
  Receive Date: 20050531
  Receipt Date: 20050524
  Transmission Date: 20051028
  Serious: Yes (Other)
  Sender: FDA-Public Use
  Company Number: PHBS2005TR07429

PATIENT
  Age: 39 Year
  Sex: Female

DRUGS (1)
  1. OXYTOCIN [Suspect]
     Indication: LABOUR INDUCTION

REACTIONS (3)
  - HAEMATURIA [None]
  - URINARY BLADDER RUPTURE [None]
  - UTERINE RUPTURE [None]
